FAERS Safety Report 5277919-5 (Version None)
Quarter: 2007Q1

REPORT INFORMATION
  Report Type: 
  Country: None (occurrence: None)
  Receive Date: 20070321
  Receipt Date: 20070315
  Transmission Date: 20070707
  Serious: Yes (Other)
  Sender: FDA-Public Use
  Company Number: 230481

PATIENT
  Age: 37 Year
  Sex: Female
  Weight: 72.8 kg

DRUGS (18)
  1. XOLAIR [Suspect]
     Indication: ASTHMA
     Dosage: 225 MG, Q2W, SUBCUTANEOUS
     Route: 058
     Dates: start: 20060112
  2. PAIN MEDICATION (ANALGESIC NOS) [Concomitant]
  3. ADVAIR DISKUS 100/50 [Concomitant]
  4. VOLMAX (ALBUTEROL/ALBUTEROL SULFATE) [Concomitant]
  5. ALBUTEROL (ALBUTEROL/ALBUTEROL SULFATE) [Concomitant]
  6. (IPRATROPOUM BROMIDE) [Concomitant]
  7. FLONASE [Concomitant]
  8. LASIX [Concomitant]
  9. K-DUR 10 [Concomitant]
  10. XANAX [Concomitant]
  11. NYSTATIN ORAL SOLUTION (NYSTATIN) [Concomitant]
  12. TYLENOL #3(UNITED STATES) (ACTAMINOPHEN, CODEINE PHOSPHATE) [Concomitant]
  13. ASTELIN [Concomitant]
  14. PREDNISONE TAB [Concomitant]
  15. PHENERGAN (PROMETHAZINE HYDROCHLORIDE) [Concomitant]
  16. TERAZOL CREAM (TERCONAZOLE) [Concomitant]
  17. KEFLEX [Concomitant]
  18. MEDICATION (UNK INGREDIENT) (GENERIC COMPONENT(S) NOT KNOWN) [Concomitant]

REACTIONS (13)
  - AMNESIA [None]
  - ARTHRALGIA [None]
  - ASTHMA [None]
  - CANDIDIASIS [None]
  - COORDINATION ABNORMAL [None]
  - DISEASE RECURRENCE [None]
  - EAR DISCOMFORT [None]
  - EAR INFECTION [None]
  - FATIGUE [None]
  - FIBROMYALGIA [None]
  - FUNGAL INFECTION [None]
  - MIGRAINE [None]
  - SPEECH DISORDER [None]
